FAERS Safety Report 7018679-7 (Version None)
Quarter: 2010Q3

REPORT INFORMATION
  Report Type: 
  Country: None (occurrence: None)
  Receive Date: 20100928
  Receipt Date: 20100714
  Transmission Date: 20110219
  Serious: Yes (Life-Threatening, Other)
  Sender: FDA-Public Use
  Company Number: US-BAYER-201021627NA

PATIENT
  Age: 22 Year
  Sex: Female
  Weight: 59 kg

DRUGS (8)
  1. YAZ [Suspect]
     Indication: CONTRACEPTION
     Route: 048
     Dates: start: 20061101, end: 20091001
  2. YASMIN [Suspect]
     Indication: PRODUCT USED FOR UNKNOWN INDICATION
     Route: 048
     Dates: start: 20040801
  3. OCELLA [Suspect]
     Indication: PRODUCT USED FOR UNKNOWN INDICATION
     Route: 048
     Dates: start: 20040801
  4. HYDROXYCUT [Concomitant]
     Dosage: 2 TABLETS
  5. ZYRTEC [Concomitant]
  6. TYLENOL [Concomitant]
  7. PHENERGAN [Concomitant]
  8. LORA TAB [Concomitant]

REACTIONS (8)
  - ABDOMINAL PAIN [None]
  - CHOLECYSTITIS CHRONIC [None]
  - DEEP VEIN THROMBOSIS [None]
  - DIARRHOEA [None]
  - GASTRIC DISORDER [None]
  - GASTROINTESTINAL DISORDER [None]
  - PYREXIA [None]
  - VOMITING [None]
